FAERS Safety Report 8676628 (Version 2)
Quarter: 2013Q4

REPORT INFORMATION
  Report Type: Spontaneous
  Country: GB (occurrence: GB)
  Receive Date: 20120723
  Receipt Date: 20131106
  Transmission Date: 20140711
  Serious: Yes (Other)
  Sender: FDA-Public Use
  Company Number: GB-009507513-1207GBR006782

PATIENT
  Age: 76 Year
  Sex: Female

DRUGS (2)
  1. COZAAR 25 MG FILM-COATED TABLETS [Suspect]
     Indication: HYPERTENSION
     Dosage: 25 MG, UNK
     Route: 048
     Dates: start: 20120608, end: 20120609
  2. VERAPAMIL [Concomitant]
     Dosage: 240 MG, UNK
     Route: 048
     Dates: start: 20101221

REACTIONS (1)
  - Erythema multiforme [Recovering/Resolving]
